FAERS Safety Report 19922787 (Version 1)
Quarter: 2021Q4

REPORT INFORMATION
  Report Type: Spontaneous
  Country: US (occurrence: US)
  Receive Date: 20211005
  Receipt Date: 20211005
  Transmission Date: 20220304
  Serious: Yes (Hospitalization)
  Sender: FDA-Public Use
  Company Number: None

PATIENT
  Age: 63 Year
  Sex: Male
  Weight: 78 kg

DRUGS (8)
  1. TECARTUS [Suspect]
     Active Substance: BREXUCABTAGENE AUTOLEUCEL
     Indication: Mantle cell lymphoma
     Dosage: OTHER FREQUENCY:ONCE;
     Route: 041
     Dates: start: 20210708, end: 20210708
  2. acyclovir (Zovirax) [Concomitant]
     Dates: start: 20210708, end: 20211004
  3. KEPPRA [Concomitant]
     Active Substance: LEVETIRACETAM
     Dates: start: 20210708, end: 20211005
  4. piperacillin-tazobactam (Zosyn) 3.375 gram/50 mL dextrose IVPB [Concomitant]
     Dates: start: 20210713, end: 20210715
  5. anakinra (Kineret) subcutaneous injection [Concomitant]
     Dates: start: 20210719, end: 20210722
  6. filgrastim (Neupogen) injection [Concomitant]
     Dates: start: 20210708, end: 20210804
  7. methylPREDNISolone (SOLU-Medrol [Concomitant]
     Dates: start: 20210714, end: 20210728
  8. TOCILIZUMAB [Concomitant]
     Active Substance: TOCILIZUMAB
     Dates: start: 20210710, end: 20210713

REACTIONS (9)
  - Cytokine release syndrome [None]
  - Immune effector cell-associated neurotoxicity syndrome [None]
  - Sensory disturbance [None]
  - Facial paralysis [None]
  - Aphasia [None]
  - Hypoaesthesia [None]
  - Visual field tests abnormal [None]
  - Tremor [None]
  - Upper motor neurone lesion [None]

NARRATIVE: CASE EVENT DATE: 20210708
